FAERS Safety Report 4898811-1 (Version None)
Quarter: 2006Q1

REPORT INFORMATION
  Report Type: 
  Country: None (occurrence: None)
  Receive Date: 20060202
  Receipt Date: 20050901
  Transmission Date: 20060701
  Serious: Yes (Other)
  Sender: FDA-Public Use
  Company Number: US-GLAXOSMITHKLINE-A0573002A

PATIENT
  Age: 5 Year
  Sex: Male

DRUGS (2)
  1. ADVAIR DISKUS 100/50 [Suspect]
     Indication: ASTHMA
     Route: 055
  2. SINGULAIR [Suspect]
     Indication: ASTHMA
     Route: 048

REACTIONS (3)
  - AGGRESSION [None]
  - THINKING ABNORMAL [None]
  - WEIGHT INCREASED [None]
